APPROVED DRUG PRODUCT: NYSTATIN
Active Ingredient: NYSTATIN
Strength: 100,000 UNITS/GM
Dosage Form/Route: POWDER;TOPICAL
Application: A065183 | Product #001 | TE Code: AT
Applicant: UPSHER SMITH LABORATORIES LLC
Approved: May 3, 2005 | RLD: No | RS: No | Type: RX